FAERS Safety Report 8048994-X (Version None)
Quarter: 2011Q4

REPORT INFORMATION
  Report Type: 
  Country: None (occurrence: None)
  Receive Date: 20111209
  Receipt Date: 20110830
  Transmission Date: 20120403
  Serious: No
  Sender: FDA-Public Use
  Company Number: 2011SP041190

PATIENT
  Age: 58 Year
  Sex: Female

DRUGS (14)
  1. GARLIC [Concomitant]
  2. PEG-INTRON [Suspect]
     Indication: PRODUCT USED FOR UNKNOWN INDICATION
     Dosage: 80 MG
  3. XANAX [Concomitant]
  4. ACETAMINOPHEN [Concomitant]
  5. ZYRTEC [Concomitant]
  6. SYNTHROID [Concomitant]
  7. MULTI-VITAMINS [Concomitant]
  8. RIBAVIRIN [Suspect]
     Indication: PRODUCT USED FOR UNKNOWN INDICATION
  9. FISH OIL [Concomitant]
  10. TRAMADOL HCL [Concomitant]
  11. IBUPROFEN [Concomitant]
  12. VICTRELIS [Suspect]
     Indication: HEPATITIS C
     Dosage: 800 MG;Q8H; PO
     Route: 048
     Dates: start: 20110813
  13. LEVOTHYROXINE SODIUM [Concomitant]
  14. PREMARIN [Concomitant]

REACTIONS (6)
  - WHITE BLOOD CELL COUNT DECREASED [None]
  - PERIPHERAL COLDNESS [None]
  - WHITE BLOOD CELL COUNT ABNORMAL [None]
  - DRY SKIN [None]
  - PRURITUS [None]
  - DYSGEUSIA [None]
